FAERS Safety Report 8543215-3 (Version None)
Quarter: 2012Q3

REPORT INFORMATION
  Report Type: 
  Country: None (occurrence: None)
  Receive Date: 20120727
  Receipt Date: 20120718
  Transmission Date: 20120928
  Serious: Yes (Other)
  Sender: FDA-Public Use
  Company Number: GB-JNJFOC-20110813331

PATIENT
  Sex: Female
  Weight: 101 kg

DRUGS (5)
  1. FERROUS SULFATE TAB [Concomitant]
     Route: 065
     Dates: end: 20111220
  2. FERROUS SULFATE TAB [Concomitant]
     Route: 065
     Dates: end: 20111103
  3. FERROUS SULFATE TAB [Concomitant]
     Route: 065
     Dates: end: 20120309
  4. FERROUS SULFATE TAB [Concomitant]
     Indication: PRODUCT USED FOR UNKNOWN INDICATION
     Route: 065
     Dates: end: 20120126
  5. CONCERTA [Suspect]
     Indication: ATTENTION DEFICIT/HYPERACTIVITY DISORDER
     Route: 048
     Dates: start: 20071026, end: 20110901

REACTIONS (2)
  - FOETAL DISTRESS SYNDROME [None]
  - MATERNAL EXPOSURE DURING PREGNANCY [None]
